FAERS Safety Report 10405316 (Version 1)
Quarter: 2014Q3

REPORT INFORMATION
  Report Type: Report from Study
  Country: FR (occurrence: FR)
  Receive Date: 20140825
  Receipt Date: 20140825
  Transmission Date: 20150326
  Serious: Yes (Hospitalization)
  Sender: FDA-Public Use
  Company Number: PHHY2014FR104918

PATIENT
  Age: 73 Year
  Sex: Female

DRUGS (8)
  1. 5-FLUOROURACIL [Suspect]
     Active Substance: FLUOROURACIL
     Indication: ADENOCARCINOMA GASTRIC
     Dosage: 564 MG 1 IN 14 DAYS
     Route: 040
     Dates: start: 20140627, end: 20140711
  2. OXALIPLATIN. [Suspect]
     Active Substance: OXALIPLATIN
     Indication: ADENOCARCINOMA GASTRIC
     Dosage: 120 MG 1 IN 14 DAYS
     Route: 042
     Dates: start: 20140627, end: 20140711
  3. IMODIUM [Concomitant]
     Active Substance: LOPERAMIDE HYDROCHLORIDE
     Dosage: UNK UKN, UNK, AS NEEDED
     Dates: start: 20140702, end: 20140704
  4. OMEPRAZOLE. [Concomitant]
     Active Substance: OMEPRAZOLE
     Dosage: 40 MG 1 IN 1 DAY
  5. 5-FLUOROURACIL [Suspect]
     Active Substance: FLUOROURACIL
     Dosage: 3382 MG, 1 IN 14 DAYS
     Route: 041
     Dates: start: 20140627, end: 20140713
  6. FOLINIC ACID [Suspect]
     Active Substance: LEUCOVORIN
     Indication: ADENOCARCINOMA GASTRIC
     Dosage: 564 MG 1 IN 14 DAY
     Route: 042
     Dates: start: 20140627, end: 20140711
  7. ZOPHREN [Concomitant]
     Active Substance: ONDANSETRON
     Dosage: 8 MG 2 IN 1 DAY
     Dates: start: 20140626, end: 20140627
  8. POLARAMINE [Concomitant]
     Active Substance: DEXCHLORPHENIRAMINE MALEATE
     Dosage: UNK UKN, UNK, 3 IN 1 DAY
     Dates: start: 20140709

REACTIONS (2)
  - Hyperglycaemia [Recovered/Resolved]
  - Thrombocytopenia [Recovered/Resolved]

NARRATIVE: CASE EVENT DATE: 20140718
